FAERS Safety Report 7561348-5 (Version None)
Quarter: 2011Q2

REPORT INFORMATION
  Report Type: 
  Country: None (occurrence: None)
  Receive Date: 20110621
  Receipt Date: 20100607
  Transmission Date: 20111010
  Serious: No
  Sender: FDA-Public Use
  Company Number: US-ASTRAZENECA-2010SE26416

PATIENT
  Age: 67 Year
  Sex: Female

DRUGS (9)
  1. PULMICORT FLEXHALER [Suspect]
     Dosage: BID
     Route: 055
     Dates: start: 20100510
  2. PULMICORT FLEXHALER [Suspect]
     Indication: CHRONIC OBSTRUCTIVE PULMONARY DISEASE
     Dosage: BID
     Route: 055
     Dates: end: 20100201
  3. PULMICORT FLEXHALER [Suspect]
     Dosage: BID
     Route: 055
     Dates: start: 20100401, end: 20100508
  4. BROVANA [Suspect]
     Route: 055
     Dates: start: 20100501
  5. PROAIR HFA [Concomitant]
  6. ALBUTEROL SULFATE AUTOHALER [Concomitant]
  7. BROVANA [Suspect]
     Dosage: 15 UG/2ML BID
     Route: 055
     Dates: start: 20100101, end: 20100201
  8. BROVANA [Suspect]
     Route: 055
     Dates: start: 20100401, end: 20100509
  9. SPIRIVA [Concomitant]

REACTIONS (2)
  - CHRONIC OBSTRUCTIVE PULMONARY DISEASE [None]
  - DRUG INEFFECTIVE [None]
